FAERS Safety Report 12338134 (Version 3)
Quarter: 2016Q4

REPORT INFORMATION
  Report Type: Report from Study
  Country: FR (occurrence: FR)
  Receive Date: 20160505
  Receipt Date: 20161028
  Transmission Date: 20170207
  Serious: Yes (Hospitalization, Other)
  Sender: FDA-Public Use
  Company Number: FR-CELGENEUS-FRA-2015046069

PATIENT
  Age: 55 Year
  Sex: Female
  Weight: 62 kg

DRUGS (3)
  1. PLACEBO [Suspect]
     Active Substance: UNSPECIFIED INGREDIENT
     Indication: PLASMA CELL MYELOMA
     Route: 048
     Dates: start: 20080311
  2. REVLIMID [Suspect]
     Active Substance: LENALIDOMIDE
     Route: 048
     Dates: end: 20100713
  3. REVLIMID [Suspect]
     Active Substance: LENALIDOMIDE
     Indication: PLASMA CELL MYELOMA
     Dosage: 40 MILLIGRAM/SQ. METER
     Route: 048
     Dates: start: 20080320, end: 20080518

REACTIONS (1)
  - Adenocarcinoma of the cervix [Recovering/Resolving]

NARRATIVE: CASE EVENT DATE: 20150311
